FAERS Safety Report 13083397 (Version 2)
Quarter: 2017Q4

REPORT INFORMATION
  Report Type: Spontaneous
  Country: MY (occurrence: MY)
  Receive Date: 20170104
  Receipt Date: 20171109
  Transmission Date: 20180320
  Serious: Yes (Other)
  Sender: FDA-Public Use
  Company Number: MY-STRIDES ARCOLAB LIMITED-2016SP020455

PATIENT

DRUGS (2)
  1. AZATHIOPRINE. [Suspect]
     Active Substance: AZATHIOPRINE
     Indication: HENOCH-SCHONLEIN PURPURA NEPHRITIS
     Dosage: 2 MG/KG, UNK
     Route: 048
  2. IBUPROFEN. [Suspect]
     Active Substance: IBUPROFEN
     Indication: MUSCULOSKELETAL PAIN
     Dosage: 200 MG, QD
     Route: 048

REACTIONS (7)
  - Hypertension [Recovered/Resolved]
  - Purpura [Recovered/Resolved]
  - Off label use [Unknown]
  - Henoch-Schonlein purpura [Recovered/Resolved]
  - Henoch-Schonlein purpura nephritis [Recovered/Resolved]
  - Urine abnormality [Recovered/Resolved]
  - Oedema peripheral [Recovered/Resolved]
